FAERS Safety Report 5530312-X (Version None)
Quarter: 2007Q4

REPORT INFORMATION
  Report Type: 
  Country: None (occurrence: None)
  Receive Date: 20071127
  Receipt Date: 20071127
  Transmission Date: 20080405
  Serious: Yes (Death)
  Sender: FDA-Public Use
  Company Number: None

PATIENT
  Age: 94 Year
  Sex: Female
  Weight: 59.5 kg

DRUGS (2)
  1. XIGRIS [Suspect]
     Indication: SEPSIS
     Dosage: 1428 MCG/HR IV DRIP
     Route: 041
     Dates: start: 20071114, end: 20071116
  2. DROTRECOGIN ALFA [Concomitant]

REACTIONS (1)
  - PULMONARY HAEMORRHAGE [None]
